FAERS Safety Report 12996961 (Version 8)
Quarter: 2017Q3

REPORT INFORMATION
  Report Type: Report from Study
  Country: US (occurrence: US)
  Receive Date: 20161205
  Receipt Date: 20170901
  Transmission Date: 20171127
  Serious: Yes (Death, Hospitalization, Other)
  Sender: FDA-Public Use
  Company Number: US-ACTELION-A-US2016-134287

PATIENT
  Age: 54 Year
  Sex: Female
  Weight: 50.79 kg

DRUGS (4)
  1. LETAIRIS [Suspect]
     Active Substance: AMBRISENTAN
     Indication: PRODUCT USED FOR UNKNOWN INDICATION
     Dosage: 10 MG, UNK
     Route: 065
  2. ADCIRCA [Concomitant]
     Active Substance: TADALAFIL
  3. VELETRI [Suspect]
     Active Substance: EPOPROSTENOL
     Dosage: 26 NG/KG, PER MIN
     Route: 042
  4. VELETRI [Suspect]
     Active Substance: EPOPROSTENOL
     Indication: PULMONARY ARTERIAL HYPERTENSION
     Dosage: 21.6 NG/KG, PER MIN
     Route: 042
     Dates: start: 20151211

REACTIONS (30)
  - Dyspnoea [Unknown]
  - Loss of consciousness [Unknown]
  - Dizziness [Recovered/Resolved]
  - Cough [Unknown]
  - Fluid overload [Unknown]
  - Flushing [Unknown]
  - Incontinence [Unknown]
  - Device alarm issue [Unknown]
  - Syncope [Unknown]
  - Weight decreased [Unknown]
  - Catheter site pain [Unknown]
  - Pneumonia [Unknown]
  - Weight increased [Recovered/Resolved]
  - Grief reaction [Unknown]
  - Upper respiratory tract infection [Unknown]
  - Headache [Unknown]
  - Pulmonary oedema [Unknown]
  - Heart rate increased [Unknown]
  - Vision blurred [Unknown]
  - Death [Fatal]
  - Fluid retention [Unknown]
  - Anxiety [Unknown]
  - Oxygen saturation decreased [Unknown]
  - Walking distance test abnormal [Unknown]
  - Amnesia [Unknown]
  - Arthralgia [Unknown]
  - Dyspnoea exertional [Unknown]
  - Palpitations [Unknown]
  - Vertigo [Unknown]
  - Pain in jaw [Unknown]

NARRATIVE: CASE EVENT DATE: 201604
